FAERS Safety Report 4521285-7 (Version None)
Quarter: 2004Q4

REPORT INFORMATION
  Report Type: 
  Country: None (occurrence: None)
  Receive Date: 20041208
  Receipt Date: 20041125
  Transmission Date: 20050328
  Serious: Yes (Death, Life-Threatening, Hospitalization)
  Sender: FDA-Public Use
  Company Number: TW-GLAXOSMITHKLINE-B0358984A

PATIENT
  Age: 28 Year
  Sex: Male
  Weight: 47.5 kg

DRUGS (6)
  1. LAMICTAL [Suspect]
     Indication: EPILEPSY
     Route: 048
     Dates: start: 20040916, end: 20040928
  2. ARTANE [Concomitant]
     Indication: EXTRAPYRAMIDAL DISORDER
     Dosage: 2MG THREE TIMES PER DAY
     Route: 048
     Dates: start: 20001220
  3. ZOLOFT [Concomitant]
     Indication: DEPRESSION
     Dosage: 50MG TWICE PER DAY
     Route: 048
     Dates: start: 20010502
  4. RISPERDAL [Concomitant]
     Indication: SCHIZOPHRENIA
     Dosage: 8MG AT NIGHT
     Route: 048
     Dates: start: 20010718
  5. DEPAKENE [Concomitant]
     Indication: EPILEPSY
     Dosage: 500MG PER DAY
     Route: 048
     Dates: start: 20040604
  6. RHIN [Concomitant]
     Indication: RHINORRHOEA
     Dosage: 1TAB THREE TIMES PER DAY
     Route: 048
     Dates: start: 20040908

REACTIONS (2)
  - RASH [None]
  - STEVENS-JOHNSON SYNDROME [None]
